FAERS Safety Report 4709106-0 (Version None)
Quarter: 2005Q3

REPORT INFORMATION
  Report Type: 
  Country: None (occurrence: None)
  Receive Date: 20050705
  Receipt Date: 20050621
  Transmission Date: 20060218
  Serious: Yes (Death, Other)
  Sender: FDA-Public Use
  Company Number: 2005048449

PATIENT
  Age: 46 Year
  Sex: Female
  Weight: 73.9363 kg

DRUGS (10)
  1. NEURONTIN [Suspect]
     Indication: PAIN
     Dosage: 900 MG (300 MG, 3 IN 1 D),
     Dates: start: 20040610, end: 20040720
  2. DICLOFENAC SODIUM [Suspect]
     Indication: ILL-DEFINED DISORDER
     Dosage: 100 MG (100 MG, 1 IN 1 D),
     Dates: start: 20040601
  3. DIFLUCAN [Concomitant]
  4. DIPHENOXYLATE (DIPHENOXYLATE) [Concomitant]
  5. PROPOXYPHENE NAPSYLATE (DEXTROPROPOXYPHENE NAPSYLATE [Concomitant]
  6. LEVOTHYROXINE SODIUM [Concomitant]
  7. ALL OTHER THERAPEUTIC PRODUCTS (ALL OTHER THERAPEUTIC PRODUCTS) [Concomitant]
  8. GLUCOSAMINE (GLUCOSAMINE) [Concomitant]
  9. CHONDROITIN (CHONDROITIN SULFATE) [Concomitant]
  10. RELAFEN [Concomitant]

REACTIONS (7)
  - AGGRESSION [None]
  - CERVICAL VERTEBRAL FRACTURE [None]
  - COMPLETED SUICIDE [None]
  - DRUG INEFFECTIVE [None]
  - HAEMORRHAGE [None]
  - INTENTIONAL SELF-INJURY [None]
  - PETECHIAE [None]
